FAERS Safety Report 9709333 (Version 2)
Quarter: 2013Q4

REPORT INFORMATION
  Report Type: Report from Study
  Country: BR (occurrence: BR)
  Receive Date: 20131125
  Receipt Date: 20131221
  Transmission Date: 20140711
  Serious: Yes (Death, Hospitalization, Other)
  Sender: FDA-Public Use
  Company Number: BR-US-EMD SERONO, INC.-7251131

PATIENT
  Age: 61 Year
  Sex: Female

DRUGS (10)
  1. REBIF [Suspect]
     Indication: RELAPSING-REMITTING MULTIPLE SCLEROSIS
     Dates: start: 20060101, end: 20131007
  2. LOSARTAN [Concomitant]
     Indication: HYPERTENSION
  3. CARVEDILOL [Concomitant]
     Indication: PRODUCT USED FOR UNKNOWN INDICATION
  4. ZYPREXA [Concomitant]
     Indication: PRODUCT USED FOR UNKNOWN INDICATION
  5. MAREVAN [Concomitant]
     Indication: PRODUCT USED FOR UNKNOWN INDICATION
  6. QUETIAPINE FUMARATE [Concomitant]
     Indication: PRODUCT USED FOR UNKNOWN INDICATION
  7. LAMOTRIGINE [Concomitant]
     Indication: PRODUCT USED FOR UNKNOWN INDICATION
  8. GINKO BILOBA [Concomitant]
     Indication: PRODUCT USED FOR UNKNOWN INDICATION
  9. SPIRONOLACTONE [Concomitant]
     Indication: PRODUCT USED FOR UNKNOWN INDICATION
  10. FUROSEMIDE [Concomitant]
     Indication: PRODUCT USED FOR UNKNOWN INDICATION

REACTIONS (20)
  - Infection [Fatal]
  - Pneumonia [Recovering/Resolving]
  - Pulmonary oedema [Unknown]
  - Blindness [Unknown]
  - Renal failure [Unknown]
  - Anaemia [Not Recovered/Not Resolved]
  - Feeding disorder [Unknown]
  - Gait disturbance [Unknown]
  - Computerised tomogram abnormal [Unknown]
  - Cardiomegaly [Unknown]
  - Blood pressure decreased [Not Recovered/Not Resolved]
  - Feeling cold [Unknown]
  - Peripheral coldness [Unknown]
  - Bedridden [Unknown]
  - Dizziness [Unknown]
  - Blood alkaline phosphatase increased [Unknown]
  - Prothrombin time abnormal [Unknown]
  - Asthenia [Unknown]
  - Aphasia [Unknown]
  - White blood cell count decreased [Recovering/Resolving]
